FAERS Safety Report 16956164 (Version 1)
Quarter: 2019Q4

REPORT INFORMATION
  Report Type: Spontaneous
  Country: US (occurrence: US)
  Receive Date: 20191024
  Receipt Date: 20191024
  Transmission Date: 20200122
  Serious: Yes (Other)
  Sender: FDA-Public Use
  Company Number: US-ROCHE-2442402

PATIENT
  Sex: Male
  Weight: 88.98 kg

DRUGS (1)
  1. ALECENSA [Suspect]
     Active Substance: ALECTINIB HYDROCHLORIDE
     Indication: NON-SMALL CELL LUNG CANCER
     Dosage: 4 PILLS IN THE AM, AND 4 PILLS IN PM,
     Route: 048
     Dates: start: 20170301

REACTIONS (2)
  - Irritable bowel syndrome [Unknown]
  - Diverticulitis [Unknown]
